FAERS Safety Report 8627504 (Version 2)
Quarter: 2014Q1

REPORT INFORMATION
  Report Type: Spontaneous
  Country: US (occurrence: None)
  Receive Date: 20120323
  Receipt Date: 20140306
  Transmission Date: 20141002
  Serious: Yes (Other)
  Sender: FDA-Public Use
  Company Number: 163-21880-11060212

PATIENT
  Age: 51 Year
  Sex: Female
  Weight: 79.4 kg

DRUGS (9)
  1. REVLIMID [Suspect]
     Indication: PLASMA CELL MYELOMA
     Dosage: 25 MG, 1 IN 1 D, PO
     Route: 048
     Dates: start: 20110415
  2. BORTEZOMIB [Concomitant]
  3. AROMASIN [Concomitant]
  4. DEXAMETHASONE [Concomitant]
  5. FENTANYL DISC (FENTANYL) [Concomitant]
  6. MS CONTIN (MORPHINE SULFATE) [Concomitant]
  7. MULTIVITAMINS [Concomitant]
  8. HYDROCODONE/ACETAMINOPHEN (REMEDEINE) [Concomitant]
  9. VITAMIN D (ERGOCALCIFEROL) [Concomitant]

REACTIONS (1)
  - Thrombosis [None]
